FAERS Safety Report 7900386-7 (Version None)
Quarter: 2011Q4

REPORT INFORMATION
  Report Type: 
  Country: None (occurrence: None)
  Receive Date: 20111108
  Receipt Date: 20111104
  Transmission Date: 20120403
  Serious: No
  Sender: FDA-Public Use
  Company Number: US-PFIZER INC-2011270808

PATIENT
  Sex: Female
  Weight: 46.712 kg

DRUGS (2)
  1. ADVIL COLD AND SINUS [Suspect]
     Dosage: 200 MG, AS NEEDED
     Route: 048
     Dates: start: 20010101
  2. ADVIL COLD AND SINUS [Suspect]
     Dosage: 200 MG, AS NEEDED
     Route: 048
     Dates: start: 20100101

REACTIONS (2)
  - SINUS HEADACHE [None]
  - DRUG INEFFECTIVE [None]
